FAERS Safety Report 5625393-9 (Version None)
Quarter: 2008Q1

REPORT INFORMATION
  Report Type: 
  Country: None (occurrence: None)
  Receive Date: 20080211
  Receipt Date: 20080204
  Transmission Date: 20080703
  Serious: Yes (Death)
  Sender: FDA-Public Use
  Company Number: 2008-00789

PATIENT
  Age: 47 Year
  Sex: Female

DRUGS (5)
  1. FIORICET [Suspect]
  2. OXYCODONE HCL AND ACETAMINOPHEN [Suspect]
  3. HYDROCODONE BITARTRATE/ACETAMINOPHEN UNKNOWN STRENGTH (WATSON)(HYDROCO [Suspect]
  4. CARISPRODOL (WATSON LABORATORIES)(CARISOPRODOL) TABLET, 350MG [Suspect]
  5. .. [Concomitant]

REACTIONS (1)
  - DEATH [None]
